FAERS Safety Report 4538030-1 (Version None)
Quarter: 2004Q4

REPORT INFORMATION
  Report Type: 
  Country: None (occurrence: None)
  Receive Date: 20041226
  Receipt Date: 20041216
  Transmission Date: 20050328
  Serious: Yes (Hospitalization)
  Sender: FDA-Public Use
  Company Number: BE-ABBOTT-04P-013-0283888-00

PATIENT
  Sex: Male
  Weight: 60.5 kg

DRUGS (5)
  1. KALETRA [Suspect]
     Indication: HIV INFECTION
     Route: 048
     Dates: start: 20041006
  2. LAMIVUDINE [Concomitant]
     Indication: HIV INFECTION
     Route: 048
  3. ABACAVIR SULFATE [Concomitant]
     Indication: DRUG USE FOR UNKNOWN INDICATION
     Route: 048
  4. CO-TRIMOXARD [Concomitant]
     Indication: DRUG USE FOR UNKNOWN INDICATION
  5. CHEMOHEAPY [Concomitant]
     Indication: DRUG USE FOR UNKNOWN INDICATION

REACTIONS (8)
  - ANOREXIA [None]
  - BARRETT'S OESOPHAGUS [None]
  - CACHEXIA [None]
  - CONSTIPATION [None]
  - DEHYDRATION [None]
  - GENERAL PHYSICAL HEALTH DETERIORATION [None]
  - INSOMNIA [None]
  - NEUTROPENIA [None]
